FAERS Safety Report 5369566-1 (Version None)
Quarter: 2007Q2

REPORT INFORMATION
  Report Type: 
  Country: None (occurrence: None)
  Receive Date: 20070620
  Receipt Date: 20070612
  Transmission Date: 20071010
  Serious: Yes (Disabling)
  Sender: FDA-Public Use
  Company Number: TPA2007A01206

PATIENT
  Age: 70 Year

DRUGS (3)
  1. PIOGLITAZONE HYDROCHLORIDE (CODE NOT BROKEN) (PIOGLITAZONE HYROCHLORID [Suspect]
     Indication: CARDIOVASCULAR EVENT PROPHYLAXIS
     Dosage: 1 IN 1 D, PER ORAL
     Route: 048
  2. PIOGLITAZONE HYDROCHLORIDE (CODE NOT BROKEN) (PIOGLITAZONE HYROCHLORID [Suspect]
     Indication: CEREBROVASCULAR ACCIDENT PROPHYLAXIS
     Dosage: 1 IN 1 D, PER ORAL
     Route: 048
  3. PIOGLITAZONE HYDROCHLORIDE (CODE NOT BROKEN) (PIOGLITAZONE HYROCHLORID [Suspect]
     Indication: ISCHAEMIC HEART DISEASE PROPHYLAXIS
     Dosage: 1 IN 1 D, PER ORAL
     Route: 048

REACTIONS (6)
  - CHEST INJURY [None]
  - CONTUSION [None]
  - JOINT DISLOCATION [None]
  - ROAD TRAFFIC ACCIDENT [None]
  - SKIN INJURY [None]
  - SUBARACHNOID HAEMORRHAGE [None]
